FAERS Safety Report 5696033-8 (Version None)
Quarter: 2008Q2

REPORT INFORMATION
  Report Type: 
  Country: None (occurrence: None)
  Receive Date: 20080407
  Receipt Date: 20080331
  Transmission Date: 20081010
  Serious: Yes (Other)
  Sender: FDA-Public Use
  Company Number: A0721415A

PATIENT
  Age: 35 Year
  Sex: Male

DRUGS (2)
  1. LAMICTAL [Suspect]
     Route: 048
     Dates: start: 20060501
  2. PHENOBARBITAL TAB [Concomitant]

REACTIONS (4)
  - CATARACT [None]
  - CONVULSION [None]
  - PSEUDOFOLLICULITIS BARBAE [None]
  - RASH [None]
